FAERS Safety Report 10214573 (Version 1)
Quarter: 2014Q2

REPORT INFORMATION
  Report Type: Spontaneous
  Country: US (occurrence: US)
  Receive Date: 20140603
  Receipt Date: 20140603
  Transmission Date: 20141212
  Serious: Yes (Hospitalization, Other)
  Sender: FDA-Public Use
  Company Number: US-GILEAD-2014-0103966

PATIENT
  Sex: Male

DRUGS (27)
  1. LETAIRIS [Suspect]
     Indication: COR PULMONALE CHRONIC
     Dosage: 10 MG, QD
     Route: 065
     Dates: start: 20130612
  2. LETAIRIS [Suspect]
     Indication: SYSTEMIC SCLEROSIS
  3. LETAIRIS [Suspect]
     Indication: PULMONARY HYPERTENSION
  4. REMODULIN [Concomitant]
  5. RESTORIL                           /00393701/ [Concomitant]
  6. XIFAXAN [Concomitant]
  7. TORSEMIDE [Concomitant]
  8. CELEBREX [Concomitant]
  9. GABAPENTIN [Concomitant]
  10. LOSARTAN [Concomitant]
  11. ASPIRIN [Concomitant]
  12. PLAVIX [Concomitant]
  13. VIAGRA [Concomitant]
  14. NEXIUM                             /01479302/ [Concomitant]
  15. ANDRODERM [Concomitant]
  16. LANOXIN [Concomitant]
  17. CRESTOR [Concomitant]
  18. TRAZODONE [Concomitant]
  19. TRICOR                             /00090101/ [Concomitant]
  20. FLUTICASONE [Concomitant]
  21. ATENOLOL [Concomitant]
  22. EFFEXOR [Concomitant]
  23. POTASSIUM CL [Concomitant]
  24. ALLOPURINOL [Concomitant]
  25. PREDNISONE [Concomitant]
  26. COLCHICINE [Concomitant]
  27. PRANDIN                            /00882701/ [Concomitant]

REACTIONS (2)
  - Fluid overload [Recovering/Resolving]
  - Skin ulcer [Unknown]
